FAERS Safety Report 18383893 (Version 1)
Quarter: 2020Q4

REPORT INFORMATION
  Report Type: Spontaneous
  Country: CA (occurrence: CA)
  Receive Date: 20201014
  Receipt Date: 20201014
  Transmission Date: 20210114
  Serious: Yes (Hospitalization, Other)
  Sender: FDA-Public Use
  Company Number: CA-JNJFOC-20201016133

PATIENT
  Age: 79 Year
  Sex: Female

DRUGS (21)
  1. APO-NADOL [Concomitant]
     Active Substance: NADOLOL
     Indication: CARDIAC DISCOMFORT
     Route: 048
  2. METHOTREXATE. [Concomitant]
     Active Substance: METHOTREXATE
     Route: 065
  3. OCUFLOX                            /00731801/ [Concomitant]
     Dosage: OCUFLOX [OFLOXACIN]
     Route: 061
  4. PANTOPRAZOLE [Concomitant]
     Active Substance: PANTOPRAZOLE
     Indication: GASTRIC PH DECREASED
     Route: 048
  5. NYSTATIN. [Concomitant]
     Active Substance: NYSTATIN
     Route: 048
  6. TYLENOL [Concomitant]
     Active Substance: ACETAMINOPHEN
     Indication: PAIN
     Route: 048
  7. APO-NADOL [Concomitant]
     Active Substance: NADOLOL
     Indication: BLOOD PRESSURE MEASUREMENT
     Route: 048
  8. CALCIUM CARBONATE. [Concomitant]
     Active Substance: CALCIUM CARBONATE
     Route: 048
  9. RAMIPRIL. [Concomitant]
     Active Substance: RAMIPRIL
     Indication: ANGINA PECTORIS
     Route: 048
  10. SANDOZ FLUOROMETHOLONE [Concomitant]
     Active Substance: FLUOROMETHOLONE
     Route: 061
  11. VENTOLIN HFA [Concomitant]
     Active Substance: ALBUTEROL SULFATE
  12. VITAMIN D3 [Concomitant]
     Active Substance: CHOLECALCIFEROL
     Route: 048
  13. MINERAL OIL. [Concomitant]
     Active Substance: MINERAL OIL
     Route: 061
  14. INFLIXIMAB, RECOMBINANT [Suspect]
     Active Substance: INFLIXIMAB
     Indication: RHEUMATOID ARTHRITIS
     Route: 042
  15. FLECAINIDE [Concomitant]
     Active Substance: FLECAINIDE
     Indication: CARDIAC DISORDER
     Route: 048
  16. FOLIC ACID. [Concomitant]
     Active Substance: FOLIC ACID
     Route: 048
  17. SYNTHROID [Concomitant]
     Active Substance: LEVOTHYROXINE SODIUM
     Indication: THYROID GLAND ABSCESS
     Route: 048
  18. XARELTO [Concomitant]
     Active Substance: RIVAROXABAN
     Indication: BLOOD DISORDER
     Route: 048
  19. CARMELLOSE SODIUM [Concomitant]
     Active Substance: CARBOXYMETHYLCELLULOSE SODIUM
     Route: 061
  20. ATORVASTATIN CALCIUM. [Concomitant]
     Active Substance: ATORVASTATIN CALCIUM
     Indication: BLOOD CHOLESTEROL INCREASED
     Route: 048
  21. FLOVENT HFA [Concomitant]
     Active Substance: FLUTICASONE PROPIONATE

REACTIONS (9)
  - Influenza [Unknown]
  - Upper limb fracture [Unknown]
  - Neck pain [Unknown]
  - Asthenia [Unknown]
  - Loss of personal independence in daily activities [Unknown]
  - Inappropriate schedule of product administration [Unknown]
  - Blood pressure increased [Unknown]
  - Forearm fracture [Unknown]
  - Pneumonia [Unknown]
